FAERS Safety Report 24313284 (Version 2)
Quarter: 2024Q4

REPORT INFORMATION
  Report Type: Spontaneous
  Country: CA (occurrence: CA)
  Receive Date: 20240912
  Receipt Date: 20241001
  Transmission Date: 20250115
  Serious: Yes (Other)
  Sender: AMERICAN REGENT
  Company Number: CA-AMERICAN REGENT INC-2024003470

PATIENT
  Age: 31 Year
  Sex: Female

DRUGS (3)
  1. VENOFER [Suspect]
     Active Substance: IRON SUCROSE
     Indication: Pregnancy
     Dosage: 300 MILLIGRAM IN 250 ML NS (DOSAGE TEXT: 100MG/5ML)
     Dates: start: 2024, end: 2024
  2. VENOFER [Suspect]
     Active Substance: IRON SUCROSE
     Indication: Iron deficiency anaemia
     Dosage: 300 MILLIGRAM IN 250 ML NS (DOSAGE TEXT: 100MG/5ML)
     Dates: start: 20240430, end: 20240430
  3. VENOFER [Suspect]
     Active Substance: IRON SUCROSE
     Indication: Anaemia of pregnancy

REACTIONS (5)
  - Urticaria [Recovered/Resolved]
  - Maternal exposure during pregnancy [Unknown]
  - Paraesthesia [Not Recovered/Not Resolved]
  - Peripheral swelling [Unknown]
  - Incorrect product administration duration [Unknown]

NARRATIVE: CASE EVENT DATE: 20240101
